FAERS Safety Report 16339067 (Version 2)
Quarter: 2019Q3

REPORT INFORMATION
  Report Type: Report from Study
  Country: FR (occurrence: FR)
  Receive Date: 20190521
  Receipt Date: 20190909
  Transmission Date: 20191004
  Serious: Yes (Disabling)
  Sender: FDA-Public Use
  Company Number: FR-ETHYPHARM-201901036

PATIENT
  Sex: Female

DRUGS (2)
  1. OROBUPRE (BUPRENORPHINE HYDROCHLORIDE) [Suspect]
     Active Substance: BUPRENORPHINE HYDROCHLORIDE
     Indication: PRODUCT SUBSTITUTION
     Dosage: IN A SINGLE INTAKE
     Route: 002
     Dates: start: 20190430, end: 201905
  2. OROBUPRE (BUPRENORPHINE HYDROCHLORIDE) [Suspect]
     Active Substance: BUPRENORPHINE HYDROCHLORIDE
     Indication: PRODUCT SUBSTITUTION
     Dosage: IN A SINGLE INTAKE
     Route: 002
     Dates: start: 201905

REACTIONS (3)
  - Arthralgia [Not Recovered/Not Resolved]
  - Withdrawal syndrome [Unknown]
  - Fatigue [Not Recovered/Not Resolved]

NARRATIVE: CASE EVENT DATE: 201905
